FAERS Safety Report 5988161-4 (Version None)
Quarter: 2008Q4

REPORT INFORMATION
  Report Type: 
  Country: None (occurrence: None)
  Receive Date: 20081203
  Receipt Date: 20081126
  Transmission Date: 20090506
  Serious: Yes (Hospitalization)
  Sender: FDA-Public Use
  Company Number: 2008SP022058

PATIENT
  Age: 37 Year
  Weight: 55 kg

DRUGS (5)
  1. CELESTAMINE TAB [Suspect]
     Indication: DRUG USE FOR UNKNOWN INDICATION
     Dosage: 1 DF;BID;PO
     Route: 048
     Dates: start: 20081025, end: 20081027
  2. MEIACT (CEFDITOREN PIVOXIL) [Concomitant]
     Indication: NASOPHARYNGITIS
     Dosage: 100 MG; BID; PO
     Route: 048
     Dates: start: 20081024, end: 20081025
  3. NIPOLAZIN (MEQUITAZINE) [Suspect]
     Indication: DRUG USE FOR UNKNOWN INDICATION
     Dosage: 3 MG; BID; PO
     Route: 048
     Dates: start: 20081025, end: 20081027
  4. IBUPROFEN TABLETS [Concomitant]
     Indication: PYREXIA
     Dosage: 200 MG; BID; PO
     Route: 048
     Dates: start: 20081024, end: 20081027
  5. GASTER D [Concomitant]

REACTIONS (7)
  - DRUG HYPERSENSITIVITY [None]
  - GENERAL PHYSICAL HEALTH DETERIORATION [None]
  - MOVEMENT DISORDER [None]
  - MYALGIA [None]
  - PYREXIA [None]
  - THERAPEUTIC RESPONSE DECREASED [None]
  - TREATMENT NONCOMPLIANCE [None]
